FAERS Safety Report 25457447 (Version 1)
Quarter: 2025Q2

REPORT INFORMATION
  Report Type: Other
  Country: US (occurrence: US)
  Receive Date: 20250619
  Receipt Date: 20250619
  Transmission Date: 20250716
  Serious: Yes (Other)
  Sender: FAGRON COMPOUNDING SERVICES D/B/A FAGRON STERILE SERVICES, WICHITA, KS
  Company Number: US-Fagron Sterile Services-2179040

PATIENT

DRUGS (1)
  1. OXYTOCIN [Suspect]
     Active Substance: OXYTOCIN

REACTIONS (1)
  - Drug ineffective [Unknown]
